FAERS Safety Report 18131551 (Version 1)
Quarter: 2020Q3

REPORT INFORMATION
  Report Type: Other
  Country: US (occurrence: US)
  Receive Date: 20200810
  Receipt Date: 20200810
  Transmission Date: 20201103
  Serious: Yes (Other)
  Sender: FDA-Public Use
  Company Number: US-ROCHE-2651116

PATIENT
  Age: 65 Year
  Sex: Female
  Weight: 128.94 kg

DRUGS (4)
  1. OXYBUTYNIN CHLORIDE. [Concomitant]
     Active Substance: OXYBUTYNIN CHLORIDE
     Dosage: ONCE DAILY
     Route: 048
  2. OCREVUS [Suspect]
     Active Substance: OCRELIZUMAB
     Indication: PRODUCT USED FOR UNKNOWN INDICATION
     Route: 065
  3. VALIUM [Suspect]
     Active Substance: DIAZEPAM
     Indication: PRODUCT USED FOR UNKNOWN INDICATION
     Route: 065
  4. LYRICA [Concomitant]
     Active Substance: PREGABALIN
     Route: 048

REACTIONS (14)
  - COVID-19 [Unknown]
  - Back pain [Unknown]
  - Nephrolithiasis [Unknown]
  - Muscular weakness [Unknown]
  - Fall [Unknown]
  - Posture abnormal [Unknown]
  - Stress cardiomyopathy [Unknown]
  - Mental status changes [Unknown]
  - Urethral obstruction [Unknown]
  - Calculus urethral [Unknown]
  - Asthenia [Unknown]
  - Hydronephrosis [Unknown]
  - Balance disorder [Unknown]
  - Peripheral swelling [Unknown]

NARRATIVE: CASE EVENT DATE: 20191119
